FAERS Safety Report 14151040 (Version 1)
Quarter: 2017Q4

REPORT INFORMATION
  Report Type: Report from Study
  Country: DE (occurrence: DE)
  Receive Date: 20171102
  Receipt Date: 20171102
  Transmission Date: 20180321
  Serious: Yes (Hospitalization)
  Sender: FDA-Public Use
  Company Number: DE-ROCHE-1631165

PATIENT
  Age: 70 Year
  Sex: Female
  Weight: 53 kg

DRUGS (7)
  1. HYDROCHLOROTHIAZID [Concomitant]
     Active Substance: HYDROCHLOROTHIAZIDE
     Indication: OEDEMA PERIPHERAL
     Route: 048
     Dates: start: 20140908
  2. XELODA [Suspect]
     Active Substance: CAPECITABINE
     Dosage: ON DAY 1 DAY 14 OF EVERY 3 WEEK CYCLE?ON 20/JAN/2014, 13/FEB/2014, 03/MAR/2014, 24/MAR/2014, 14/APR/
     Route: 048
     Dates: start: 20131230, end: 20140810
  3. BEVACIZUMAB. [Suspect]
     Active Substance: BEVACIZUMAB
     Route: 042
     Dates: start: 20140728, end: 20140728
  4. SOTALOL. [Concomitant]
     Active Substance: SOTALOL
     Indication: CORONARY ARTERY DISEASE
     Route: 048
     Dates: start: 20130529
  5. BEVACIZUMAB. [Suspect]
     Active Substance: BEVACIZUMAB
     Indication: BREAST CANCER
     Route: 042
     Dates: start: 20130819, end: 20130819
  6. XELODA [Suspect]
     Active Substance: CAPECITABINE
     Indication: BREAST CANCER
     Dosage: ON DAY 1 DAY 14 OF EVERY 3 WEEK CYCLE?ON 26/AUG/2013, 16/SEP/2013, 07/OCT/2013, 28/OCT/2013, 18/NOV/
     Route: 048
     Dates: start: 20130805, end: 20131201
  7. CEFUROXIN [Concomitant]
     Active Substance: CEFUROXIME
     Indication: INFLUENZA
     Route: 048
     Dates: start: 20140925

REACTIONS (2)
  - Hypertensive crisis [Recovered/Resolved]
  - Concussion [Recovered/Resolved]

NARRATIVE: CASE EVENT DATE: 20140808
